FAERS Safety Report 9341411 (Version 2)
Quarter: 2013Q2

REPORT INFORMATION
  Report Type: Spontaneous
  Country: BE (occurrence: BE)
  Receive Date: 20130611
  Receipt Date: 20130617
  Transmission Date: 20140414
  Serious: Yes (Disabling)
  Sender: FDA-Public Use
  Company Number: BE-ROCHE-1235472

PATIENT
  Age: 64 Year
  Sex: Female
  Weight: 59 kg

DRUGS (6)
  1. HERCEPTIN [Suspect]
     Indication: BREAST CANCER RECURRENT
     Route: 042
     Dates: start: 201301
  2. ASAFLOW [Concomitant]
     Route: 048
  3. SOTALEX [Concomitant]
     Indication: ATRIAL FIBRILLATION
     Route: 048
  4. FEMARA [Concomitant]
     Route: 048
  5. ELTHYRONE [Concomitant]
     Route: 048
  6. AMLOR [Concomitant]
     Indication: HYPERTENSION
     Route: 048

REACTIONS (1)
  - Papilloedema [Not Recovered/Not Resolved]
